FAERS Safety Report 17098390 (Version 1)
Quarter: 2019Q4

REPORT INFORMATION
  Report Type: Other
  Country: US (occurrence: US)
  Receive Date: 20191202
  Receipt Date: 20191202
  Transmission Date: 20200122
  Serious: Yes (Other)
  Sender: FDA-Public Use
  Company Number: US-P+L DEVELOPMENTS OF NEWYORK CORPORATION-2077362

PATIENT
  Age: 43 Year
  Sex: Male

DRUGS (1)
  1. MINOXIDIL TOPICAL SOLUTION [Suspect]
     Active Substance: MINOXIDIL
     Indication: HYPERTENSION
     Route: 065

REACTIONS (1)
  - Pericardial effusion [Recovering/Resolving]
